FAERS Safety Report 24617327 (Version 2)
Quarter: 2024Q4

REPORT INFORMATION
  Report Type: Report from Study
  Country: PK (occurrence: PK)
  Receive Date: 20241114
  Receipt Date: 20241124
  Transmission Date: 20250115
  Serious: Yes (Death)
  Sender: ROCHE
  Company Number: PK-ROCHE-10000130671

PATIENT
  Age: 20 Year
  Sex: Male

DRUGS (2)
  1. MABTHERA [Suspect]
     Active Substance: RITUXIMAB
     Indication: Burkitt^s lymphoma
     Route: 042
     Dates: start: 20240610, end: 20240930
  2. MABTHERA [Suspect]
     Active Substance: RITUXIMAB
     Route: 042

REACTIONS (1)
  - Organ failure [Fatal]

NARRATIVE: CASE EVENT DATE: 20241016
